FAERS Safety Report 8891090 (Version 6)
Quarter: 2013Q2

REPORT INFORMATION
  Report Type: Report from Study
  Country: GB (occurrence: GB)
  Receive Date: 20121107
  Receipt Date: 20130625
  Transmission Date: 20140414
  Serious: Yes (Hospitalization)
  Sender: FDA-Public Use
  Company Number: GB-PFIZER INC-2012271724

PATIENT
  Age: 65 Year
  Sex: Male

DRUGS (8)
  1. RAMIPRIL [Suspect]
     Indication: ISCHAEMIC HEART DISEASE PROPHYLAXIS
     Dosage: UNK
     Route: 048
  2. ATORVASTATIN [Concomitant]
     Indication: BLOOD CHOLESTEROL INCREASED
     Dosage: UNK
     Route: 048
  3. OMEPRAZOLE [Concomitant]
     Indication: PROPHYLAXIS
     Dosage: UNK
     Route: 048
  4. CITALOPRAM [Concomitant]
     Indication: DEPRESSION
     Dosage: UNK
     Route: 048
  5. BISOPROLOL [Concomitant]
     Indication: MYOCARDIAL INFARCTION
     Dosage: UNK
     Route: 048
  6. ASA [Concomitant]
     Dosage: 75 MG, UNK
     Route: 048
  7. EVEROLIMUS [Concomitant]
     Dosage: UNK
  8. PRASUGREL [Concomitant]
     Dosage: UNK

REACTIONS (1)
  - Pneumonia [Recovered/Resolved]
